FAERS Safety Report 21344228 (Version 1)
Quarter: 2022Q3

REPORT INFORMATION
  Report Type: Spontaneous
  Country: US (occurrence: US)
  Receive Date: 20220916
  Receipt Date: 20220916
  Transmission Date: 20221027
  Serious: No
  Sender: FDA-Public Use
  Company Number: US-SK LIFE SCIENCE, INC-SKPVG-2022-000612

PATIENT

DRUGS (2)
  1. XCOPRI [Suspect]
     Active Substance: CENOBAMATE
     Indication: Product used for unknown indication
     Dosage: 12.5/25MG, QD
     Route: 048
     Dates: end: 20220810
  2. XCOPRI [Suspect]
     Active Substance: CENOBAMATE
     Dosage: 12.5/25MG, QD
     Route: 048
     Dates: start: 20220812

REACTIONS (2)
  - Seizure [Recovered/Resolved]
  - Product dose omission issue [Recovered/Resolved]

NARRATIVE: CASE EVENT DATE: 20220811
